FAERS Safety Report 12891316 (Version 1)
Quarter: 2016Q4

REPORT INFORMATION
  Report Type: Spontaneous
  Country: US (occurrence: US)
  Receive Date: 20161026
  Receipt Date: 20161026
  Transmission Date: 20170207
  Serious: Yes (Life-Threatening, Hospitalization)
  Sender: FDA-Public Use
  Company Number: None

PATIENT
  Age: 82 Year
  Sex: Female
  Weight: 59 kg

DRUGS (3)
  1. DILTIAZEM. [Concomitant]
     Active Substance: DILTIAZEM
  2. IVPB PIPERACILLIN-TAZOBACTAM [Concomitant]
  3. AMIODARONE [Suspect]
     Active Substance: AMIODARONE
     Indication: ATRIAL FIBRILLATION
     Dosage: ?          OTHER FREQUENCY:ONCE;?
     Route: 040

REACTIONS (3)
  - Atrial fibrillation [None]
  - Blood pressure decreased [None]
  - Respiratory arrest [None]

NARRATIVE: CASE EVENT DATE: 20161018
